FAERS Safety Report 18131778 (Version 1)
Quarter: 2020Q3

REPORT INFORMATION
  Report Type: Spontaneous
  Country: PT (occurrence: PT)
  Receive Date: 20200810
  Receipt Date: 20200810
  Transmission Date: 20201103
  Serious: Yes (Other)
  Sender: FDA-Public Use
  Company Number: PT-ELI_LILLY_AND_COMPANY-PT202007009156

PATIENT
  Sex: Female

DRUGS (16)
  1. BLEOMYCIN SULFATE [Suspect]
     Active Substance: BLEOMYCIN SULFATE
     Dosage: ABVD REGIMEN
     Route: 065
     Dates: start: 201612
  2. CAELYX [Suspect]
     Active Substance: DOXORUBICIN HYDROCHLORIDE
     Dosage: GVD (GEMCITABINE, VINORELBINE AND LIPOSOMAL DOXORUBICIN)
     Route: 065
     Dates: start: 201705
  3. CAELYX [Suspect]
     Active Substance: DOXORUBICIN HYDROCHLORIDE
     Indication: HODGKIN^S DISEASE
     Dosage: ABVD REGIMEN
     Route: 065
     Dates: start: 201403
  4. CAELYX [Suspect]
     Active Substance: DOXORUBICIN HYDROCHLORIDE
     Dosage: ABVD REGIMEN
     Route: 065
     Dates: start: 201611
  5. DOXORUBICIN HYDROCHLORIDE. [Suspect]
     Active Substance: DOXORUBICIN HYDROCHLORIDE
     Indication: HODGKIN^S DISEASE
     Dosage: UNK, UNKNOWN
     Route: 065
  6. VINBLASTINE SULFATE. [Suspect]
     Active Substance: VINBLASTINE SULFATE
     Dosage: ABVD REGIMEN
     Route: 065
     Dates: start: 201611
  7. VINBLASTINE SULFATE. [Suspect]
     Active Substance: VINBLASTINE SULFATE
     Dosage: ABVD REGIMEN
     Route: 065
     Dates: start: 201612
  8. BLEOMYCIN SULFATE [Suspect]
     Active Substance: BLEOMYCIN SULFATE
     Dosage: ABVD REGIMEN
     Route: 065
     Dates: start: 201611
  9. GEMCITABINE HYDROCHLORIDE. [Suspect]
     Active Substance: GEMCITABINE HYDROCHLORIDE
     Indication: HODGKIN^S DISEASE
     Dosage: GVD
     Route: 065
     Dates: start: 201705
  10. CAELYX [Suspect]
     Active Substance: DOXORUBICIN HYDROCHLORIDE
     Dosage: ABVD REGIMEN
     Route: 065
     Dates: start: 201612
  11. VINBLASTINE SULFATE. [Suspect]
     Active Substance: VINBLASTINE SULFATE
     Indication: HODGKIN^S DISEASE
     Dosage: ABVD REGIMEN
     Route: 065
     Dates: start: 201403
  12. BLEOMYCIN SULFATE [Suspect]
     Active Substance: BLEOMYCIN SULFATE
     Indication: HODGKIN^S DISEASE
     Dosage: ABVD REGIMEN
     Route: 065
     Dates: start: 201403
  13. DACARBAZINE. [Suspect]
     Active Substance: DACARBAZINE
     Dosage: ABVD REGIMEN
     Route: 065
     Dates: start: 201611
  14. VINORELBINE TARTRATE. [Suspect]
     Active Substance: VINORELBINE TARTRATE
     Indication: HODGKIN^S DISEASE
     Dosage: GVD REGIMEN
     Route: 065
     Dates: start: 201705
  15. DACARBAZINE. [Suspect]
     Active Substance: DACARBAZINE
     Indication: HODGKIN^S DISEASE
     Dosage: ABVD REGIMEN
     Route: 065
     Dates: start: 201403
  16. DACARBAZINE. [Suspect]
     Active Substance: DACARBAZINE
     Dosage: ABVD REGIMEN
     Route: 065
     Dates: start: 201612

REACTIONS (5)
  - Discomfort [Unknown]
  - Rash pruritic [Unknown]
  - Hypersensitivity [Recovering/Resolving]
  - Off label use [Unknown]
  - Hypotension [Unknown]
